FAERS Safety Report 15316042 (Version 2)
Quarter: 2018Q4

REPORT INFORMATION
  Report Type: Spontaneous
  Country: US (occurrence: US)
  Receive Date: 20180824
  Receipt Date: 20181003
  Transmission Date: 20190204
  Serious: Yes (Hospitalization, Other)
  Sender: FDA-Public Use
  Company Number: US-009507513-1808USA009651

PATIENT
  Sex: Male
  Weight: 1.28 kg

DRUGS (6)
  1. CAFFEINE, CITRATED [Concomitant]
     Dosage: 5 MG/KG, Q24H
     Route: 048
  2. CAFFEINE, CITRATED [Concomitant]
     Indication: INFANTILE APNOEA
     Dosage: 5 MG/KG/DOSE, EVERY 24 HOURS
     Route: 042
  3. TRUSOPT [Suspect]
     Active Substance: DORZOLAMIDE HYDROCHLORIDE
     Indication: DEVELOPMENTAL GLAUCOMA
     Dosage: 1 DROP, BID, OU
     Route: 047
  4. BETAXOLOL HYDROCHLORIDE. [Concomitant]
     Active Substance: BETAXOLOL HYDROCHLORIDE
     Indication: DEVELOPMENTAL GLAUCOMA
     Dosage: 1 DROP IN BOTH EYES TWICE DAILY
     Route: 047
  5. URSODIOL. [Concomitant]
     Active Substance: URSODIOL
     Indication: CHOLESTASIS
     Dosage: 10 MG/KG, Q12H
     Route: 048
  6. LATANOPROST. [Concomitant]
     Active Substance: LATANOPROST
     Indication: DEVELOPMENTAL GLAUCOMA
     Dosage: 1 DROP IN BOTH EYES AT BEDTIME
     Route: 047

REACTIONS (3)
  - Metabolic acidosis [Recovered/Resolved]
  - Off label use [Unknown]
  - Product administered to patient of inappropriate age [Unknown]
